FAERS Safety Report 21003646 (Version 1)
Quarter: 2022Q2

REPORT INFORMATION
  Report Type: Spontaneous
  Country: US (occurrence: US)
  Receive Date: 20220624
  Receipt Date: 20220624
  Transmission Date: 20220720
  Serious: Yes (Death, Hospitalization, Other)
  Sender: FDA-Public Use
  Company Number: US-Shilpa Medicare Limited-SML-US-2022-00686

PATIENT
  Age: 87 Year
  Sex: Male

DRUGS (6)
  1. AZACITIDINE [Suspect]
     Active Substance: AZACITIDINE
     Indication: Acute myeloid leukaemia
     Dosage: DAY 1 TO 7
     Route: 042
  2. AZACITIDINE [Suspect]
     Active Substance: AZACITIDINE
     Dosage: DAY 1 TO 14 (ADDITIONAL CYCLES OF THERAPY WITH FULL DOSE)
     Route: 042
  3. VENETOCLAX [Suspect]
     Active Substance: VENETOCLAX
     Indication: Acute myeloid leukaemia
     Dosage: DAY 1
  4. VENETOCLAX [Suspect]
     Active Substance: VENETOCLAX
     Dosage: FROM DAY 3 TO 21.
  5. VENETOCLAX [Suspect]
     Active Substance: VENETOCLAX
     Dosage: RE-STARTED FROM DAY 1 TO 14 (10 ADDITIONAL CYCLES OF THERAPY)
  6. MICAFUNGIN [Concomitant]
     Active Substance: MICAFUNGIN
     Indication: Antifungal prophylaxis

REACTIONS (5)
  - Acute febrile neutrophilic dermatosis [Fatal]
  - Acute myeloid leukaemia [Unknown]
  - Acute myeloid leukaemia recurrent [Unknown]
  - Febrile neutropenia [Recovering/Resolving]
  - Cytopenia [Recovering/Resolving]
